FAERS Safety Report 9995539 (Version 1)
Quarter: 2014Q1

REPORT INFORMATION
  Report Type: Spontaneous
  Country: US (occurrence: None)
  Receive Date: 20140306
  Receipt Date: 20140306
  Transmission Date: 20141002
  Serious: Yes (Hospitalization)
  Sender: FDA-Public Use
  Company Number: IMP_07486_2014

PATIENT
  Age: 16 Year
  Sex: Male

DRUGS (3)
  1. BUPROPION [Suspect]
     Indication: PRODUCT USED FOR UNKNOWN INDICATION
     Dosage: ( 5 DF [NOT THE PRESCRIBED AMOUNT]) PRODUCT USED UNKNOWN INDICATION??
  2. MARIJUANA [Suspect]
     Indication: PRODUCT USED FOR UNKNOWN INDICATION
     Dosage: DF
  3. FLUOXETINE [Concomitant]

REACTIONS (8)
  - Exposure via ingestion [None]
  - Mental status changes [None]
  - Hallucination [None]
  - Suicidal ideation [None]
  - Grand mal convulsion [None]
  - Memory impairment [None]
  - Drug screen positive [None]
  - Drug abuse [None]
